FAERS Safety Report 20771546 (Version 2)
Quarter: 2022Q2

REPORT INFORMATION
  Report Type: Spontaneous
  Country: NL (occurrence: None)
  Receive Date: 20220430
  Receipt Date: 20220527
  Transmission Date: 20220721
  Serious: Yes (Life-Threatening, Hospitalization)
  Sender: FDA-Public Use
  Company Number: None

PATIENT
  Age: 68 Year
  Sex: Female
  Weight: 52.6 kg

DRUGS (14)
  1. BEVACIZUMAB [Suspect]
     Active Substance: BEVACIZUMAB
     Indication: Colon cancer
     Dosage: EENMALIG, 400 MG IN 100 ML NACL
     Route: 065
     Dates: start: 20220317, end: 20220317
  2. METOCLOPRAMIDE [Concomitant]
     Active Substance: METOCLOPRAMIDE
     Dosage: 10 MG, ORAAL, 3XDD
  3. ESOMEPRAZOLE [Concomitant]
     Active Substance: ESOMEPRAZOLE
     Dosage: 1XDD
  4. LOPERAMIDE [Concomitant]
     Active Substance: LOPERAMIDE
     Dosage: ORAAL, VOLGENS TOEDIENINGSINSTRUCTIES
  5. ACETAMINOPHEN [Concomitant]
     Active Substance: ACETAMINOPHEN
     Dosage: 1.000 MG, ORAAL, 4XDD
  6. OXALIPLATIN [Concomitant]
     Active Substance: OXALIPLATIN
     Dosage: INFUUS, 1 MG/MG (MILLIGRAM PER MILLIGRAM)
  7. METOCLOPRAMIDE [Concomitant]
     Active Substance: METOCLOPRAMIDE
     Dosage: 10 MG, RECTAAL, 3XDD
  8. ALBUTEROL [Concomitant]
     Active Substance: ALBUTEROL
     Dosage: 1 DOSIS, INHALATIE, ZN EENMALIG STRENGTH: 100UG/DO, AEROSOL
  9. FLUTICASONE PROPIONATE\SALMETEROL XINAFOATE [Concomitant]
     Active Substance: FLUTICASONE PROPIONATE\SALMETEROL XINAFOATE
     Dosage: 2 DOSIS, INHALATIE, 2XDD, STRENGTH: 25/250UG/DO, AEROSOL
  10. LEVOTHYROXINE [Concomitant]
     Active Substance: LEVOTHYROXINE
     Dosage: 75 MCG, ORAAL, 1XDD
     Route: 048
  11. OXYCODONE [Concomitant]
     Active Substance: OXYCODONE
     Dosage: 20 MG, ORAAL, 2XDD
  12. CAPECITABINE [Concomitant]
     Active Substance: CAPECITABINE
     Dosage: FILMOMHULDE TABLET, 150 MG (MILLIGRAM)
  13. CAPECITABINE [Concomitant]
     Active Substance: CAPECITABINE
     Dosage: FILMOMHULDE TABLET, 500 MG (MILLIGRAM)
  14. ONDANSETRON [Concomitant]
     Active Substance: ONDANSETRON
     Dosage: 8 MG, ORAAL, 1XDD

REACTIONS (2)
  - Chondronecrosis [Not Recovered/Not Resolved]
  - Vocal cord paresis [Not Recovered/Not Resolved]

NARRATIVE: CASE EVENT DATE: 20220409
